FAERS Safety Report 13789267 (Version 2)
Quarter: 2017Q3

REPORT INFORMATION
  Report Type: Report from Study
  Country: CA (occurrence: CA)
  Receive Date: 20170725
  Receipt Date: 20170810
  Transmission Date: 20171127
  Serious: Yes (Other)
  Sender: FDA-Public Use
  Company Number: CA-EMD SERONO-E2B_80075847

PATIENT
  Age: 40 Year
  Sex: Female

DRUGS (1)
  1. REBIF [Suspect]
     Active Substance: INTERFERON BETA-1A
     Indication: MULTIPLE SCLEROSIS
     Route: 058
     Dates: start: 20150709

REACTIONS (7)
  - Influenza like illness [Unknown]
  - Body temperature increased [Unknown]
  - Multiple sclerosis relapse [Unknown]
  - Scar [Unknown]
  - Fatigue [Unknown]
  - Ulcer [Unknown]
  - Cellulitis [Unknown]

NARRATIVE: CASE EVENT DATE: 201703
